FAERS Safety Report 10229631 (Version 1)
Quarter: 2014Q2

REPORT INFORMATION
  Report Type: Spontaneous
  Country: US (occurrence: None)
  Receive Date: 20140610
  Receipt Date: 20140610
  Transmission Date: 20141212
  Serious: Yes (Disabling)
  Sender: FDA-Public Use
  Company Number: None

PATIENT
  Age: 53 Year
  Sex: Female
  Weight: 49.9 kg

DRUGS (3)
  1. SPIRIVA HANDIHALER [Suspect]
     Indication: CHRONIC OBSTRUCTIVE PULMONARY DISEASE
     Dosage: 1 PILL = 2 PUFFS, 1 IN AM
     Route: 048
     Dates: start: 20131115
  2. HYDROCODONE [Concomitant]
  3. DAILY MULTIVITAMIN [Concomitant]

REACTIONS (2)
  - Dyspnoea [None]
  - Fatigue [None]
